FAERS Safety Report 18975113 (Version 2)
Quarter: 2021Q1

REPORT INFORMATION
  Report Type: Spontaneous
  Country: US (occurrence: US)
  Receive Date: 20210305
  Receipt Date: 20210318
  Transmission Date: 20210420
  Serious: Yes (Hospitalization)
  Sender: FDA-Public Use
  Company Number: US-BIOGEN-2021BI00983071

PATIENT
  Age: 10 Year
  Sex: Female
  Weight: 19 kg

DRUGS (27)
  1. APITEGROMAB. [Suspect]
     Active Substance: APITEGROMAB
     Dosage: 20 MG/KG, SINGLE
     Route: 042
     Dates: start: 20190923, end: 20190923
  2. APITEGROMAB. [Suspect]
     Active Substance: APITEGROMAB
     Dosage: 20 MG/KG, SINGLE
     Route: 042
     Dates: start: 20201103, end: 20201103
  3. APITEGROMAB. [Suspect]
     Active Substance: APITEGROMAB
     Dosage: 20 MG/KG, SINGLE
     Route: 042
     Dates: start: 20201201, end: 20201201
  4. APITEGROMAB. [Suspect]
     Active Substance: APITEGROMAB
     Dosage: 20 MG/KG, SINGLE
     Route: 042
     Dates: start: 20191202, end: 20191202
  5. EMLA [Concomitant]
     Active Substance: LIDOCAINE\PRILOCAINE
     Indication: PRODUCT USED FOR UNKNOWN INDICATION
     Route: 065
     Dates: start: 20170918
  6. MIDAZOLAM. [Concomitant]
     Active Substance: MIDAZOLAM
     Indication: PRODUCT USED FOR UNKNOWN INDICATION
     Route: 065
     Dates: start: 20130918
  7. RISDIPLAM. [Concomitant]
     Active Substance: RISDIPLAM
     Indication: PRODUCT USED FOR UNKNOWN INDICATION
     Route: 065
     Dates: start: 20201110
  8. KETOROLAC [Concomitant]
     Active Substance: KETOROLAC TROMETHAMINE
     Indication: PRODUCT USED FOR UNKNOWN INDICATION
     Route: 065
  9. SPINRAZA [Suspect]
     Active Substance: NUSINERSEN
     Indication: SPINAL MUSCULAR ATROPHY
     Route: 065
  10. APITEGROMAB. [Suspect]
     Active Substance: APITEGROMAB
     Dosage: 20 MG/KG, SINGLE
     Route: 042
     Dates: start: 20191024, end: 20191024
  11. APITEGROMAB. [Suspect]
     Active Substance: APITEGROMAB
     Dosage: 20 MG/KG, SINGLE
     Route: 042
     Dates: start: 20200227, end: 20200227
  12. APITEGROMAB. [Suspect]
     Active Substance: APITEGROMAB
     Dosage: 20 MG/KG, SINGLE
     Route: 042
     Dates: start: 20200326, end: 20200326
  13. APITEGROMAB. [Suspect]
     Active Substance: APITEGROMAB
     Dosage: 20 MG/KG, SINGLE
     Route: 042
     Dates: start: 20200813, end: 20200813
  14. APITEGROMAB. [Suspect]
     Active Substance: APITEGROMAB
     Dosage: 20 MG/KG, SINGLE
     Route: 042
     Dates: start: 20201008, end: 20201008
  15. OXYCODONE [Concomitant]
     Active Substance: OXYCODONE
     Indication: PRODUCT USED FOR UNKNOWN INDICATION
     Route: 065
  16. GABAPENTIN. [Concomitant]
     Active Substance: GABAPENTIN
     Indication: PRODUCT USED FOR UNKNOWN INDICATION
     Route: 065
  17. APITEGROMAB. [Suspect]
     Active Substance: APITEGROMAB
     Indication: SPINAL MUSCULAR ATROPHY
     Dosage: 20 MG/KG, SINGLE
     Route: 042
     Dates: start: 20190828, end: 20190828
  18. APITEGROMAB. [Suspect]
     Active Substance: APITEGROMAB
     Dosage: 20 MG/KG, SINGLE
     Route: 042
     Dates: start: 20200130
  19. ACETAMINOPHEN. [Concomitant]
     Active Substance: ACETAMINOPHEN
     Indication: PRODUCT USED FOR UNKNOWN INDICATION
  20. APITEGROMAB. [Suspect]
     Active Substance: APITEGROMAB
     Dosage: 20 MG/KG, SINGLE
     Route: 042
     Dates: start: 20200102, end: 20200102
  21. APITEGROMAB. [Suspect]
     Active Substance: APITEGROMAB
     Dosage: 20 MG/KG, SINGLE
     Route: 042
     Dates: start: 20200601, end: 20200601
  22. APITEGROMAB. [Suspect]
     Active Substance: APITEGROMAB
     Dosage: 20 MG/KG, SINGLE
     Route: 042
     Dates: start: 20200430, end: 20200430
  23. APITEGROMAB. [Suspect]
     Active Substance: APITEGROMAB
     Dosage: 20 MG/KG, SINGLE
     Route: 042
     Dates: start: 20200701, end: 20200701
  24. APITEGROMAB. [Suspect]
     Active Substance: APITEGROMAB
     Dosage: 20 MG/KG, SINGLE
     Route: 042
     Dates: start: 20200910, end: 20200910
  25. POLYETHYLENE GLYCOL 3350. [Concomitant]
     Active Substance: POLYETHYLENE GLYCOL 3350
     Indication: PRODUCT USED FOR UNKNOWN INDICATION
     Route: 065
     Dates: start: 20130416
  26. SALBUTAMOL [Concomitant]
     Active Substance: ALBUTEROL
     Indication: PRODUCT USED FOR UNKNOWN INDICATION
     Route: 065
     Dates: start: 20160115
  27. VALIUM [Concomitant]
     Active Substance: DIAZEPAM
     Indication: PRODUCT USED FOR UNKNOWN INDICATION
     Route: 065

REACTIONS (2)
  - Scoliosis [Recovered/Resolved]
  - Procedural pain [Unknown]
